FAERS Safety Report 12804019 (Version 1)
Quarter: 2016Q4

REPORT INFORMATION
  Report Type: Spontaneous
  Country: US (occurrence: US)
  Receive Date: 20161001
  Receipt Date: 20161001
  Transmission Date: 20170207
  Serious: Yes (Hospitalization)
  Sender: FDA-Public Use
  Company Number: None

PATIENT
  Age: 61 Year
  Sex: Male
  Weight: 78.3 kg

DRUGS (1)
  1. CLINDAMYCIN. [Suspect]
     Active Substance: CLINDAMYCIN
     Indication: TOOTH INFECTION

REACTIONS (4)
  - Diarrhoea [None]
  - Pyrexia [None]
  - Blood pressure decreased [None]
  - Clostridium difficile infection [None]

NARRATIVE: CASE EVENT DATE: 20160824
